FAERS Safety Report 7361556-2 (Version None)
Quarter: 2011Q1

REPORT INFORMATION
  Report Type: 
  Country: None (occurrence: None)
  Receive Date: 20110318
  Receipt Date: 20110315
  Transmission Date: 20110831
  Serious: Yes (Death)
  Sender: FDA-Public Use
  Company Number: PHHY2011US21693

PATIENT

DRUGS (1)
  1. RECLAST [Suspect]
     Dosage: 5 MG, PER YEAR
     Route: 042

REACTIONS (1)
  - RENAL FAILURE ACUTE [None]
